FAERS Safety Report 6407141 (Version 2)
Quarter: 2013Q1

REPORT INFORMATION
  Report Type: Spontaneous
  Country: DE (occurrence: None)
  Receive Date: 20070828
  Receipt Date: 20130128
  Transmission Date: 20140127
  Serious: Yes (Hospitalization, Other)
  Sender: FDA-Public Use
  Company Number: 2007US-09340

PATIENT
  Age: 17 Year
  Sex: Male

DRUGS (1)
  1. VERAPAMIL [Suspect]
     Indication: PRODUCT USED FOR UNKNOWN INDICATION
     Dosage: 50 TABLETS OF 120MG, ORAL
     Route: 048

REACTIONS (21)
  - Shock [None]
  - Leukocytosis [None]
  - Metabolic acidosis [None]
  - Respiratory acidosis [None]
  - Cardiovascular insufficiency [None]
  - Somnolence [None]
  - Bradycardia [None]
  - Vomiting [None]
  - Hyperglycaemia [None]
  - Hypokalaemia [None]
  - Bundle branch block right [None]
  - Sinus arrest [None]
  - Sinoatrial block [None]
  - Pleural effusion [None]
  - Pulmonary congestion [None]
  - Overdose [None]
  - Toxicity to various agents [None]
  - Circulatory collapse [None]
  - Loss of consciousness [None]
  - Anuria [None]
  - Atrioventricular block complete [None]
